FAERS Safety Report 6091231-6 (Version None)
Quarter: 2009Q1

REPORT INFORMATION
  Report Type: 
  Country: None (occurrence: None)
  Receive Date: 20090220
  Receipt Date: 20090220
  Transmission Date: 20090719
  Serious: Yes (Hospitalization)
  Sender: FDA-Public Use
  Company Number: None

PATIENT
  Sex: Female
  Weight: 64.4108 kg

DRUGS (1)
  1. FERLECIT 62.5MG -2 VIALS FOR TOTAL 125MG- WATSON [Suspect]
     Indication: IRON DEFICIENCY ANAEMIA
     Dosage: 125MG ONE TIME DOSE IV DRIP
     Route: 041
     Dates: start: 20090212, end: 20090212

REACTIONS (1)
  - RASH ERYTHEMATOUS [None]
